FAERS Safety Report 4531038-1 (Version None)
Quarter: 2004Q4

REPORT INFORMATION
  Report Type: 
  Country: None (occurrence: None)
  Receive Date: 20041126
  Receipt Date: 20040817
  Transmission Date: 20050328
  Serious: No
  Sender: FDA-Public Use
  Company Number: SU-2004-002518

PATIENT
  Age: 55 Year
  Sex: Male
  Weight: 91.6266 kg

DRUGS (1)
  1. BENICAR [Suspect]
     Indication: HYPERTENSION
     Dosage: 20 MG QD PO
     Route: 048
     Dates: start: 20040702, end: 20040706

REACTIONS (1)
  - OROPHARYNGEAL SWELLING [None]
